FAERS Safety Report 25622317 (Version 1)
Quarter: 2025Q3

REPORT INFORMATION
  Report Type: Spontaneous
  Country: US (occurrence: None)
  Receive Date: 20250729
  Receipt Date: 20250729
  Transmission Date: 20251021
  Serious: Yes (unspecified)
  Sender: FDA-CTU
  Company Number: None

PATIENT
  Age: 23 Year
  Sex: Male
  Weight: 54.855 kg

DRUGS (1)
  1. HALOPERIDOL LACTATE [Suspect]
     Active Substance: HALOPERIDOL LACTATE
     Indication: Psychotic disorder
     Route: 030
     Dates: start: 20240906, end: 20240924

REACTIONS (6)
  - Extrapyramidal disorder [None]
  - Protrusion tongue [None]
  - Musculoskeletal stiffness [None]
  - Musculoskeletal disorder [None]
  - Drooling [None]
  - Therapy change [None]

NARRATIVE: CASE EVENT DATE: 20240924
